FAERS Safety Report 13254998 (Version 7)
Quarter: 2017Q3

REPORT INFORMATION
  Report Type: Spontaneous
  Country: US (occurrence: US)
  Receive Date: 20170221
  Receipt Date: 20170829
  Transmission Date: 20171127
  Serious: Yes (Congenital Anomaly, Other)
  Sender: FDA-Public Use
  Company Number: PHEH2017US005058

PATIENT
  Sex: Male

DRUGS (3)
  1. ZOFRAN ODT [Suspect]
     Active Substance: ONDANSETRON HYDROCHLORIDE
     Indication: FOETAL EXPOSURE DURING PREGNANCY
     Dosage: MOTHER DOSE: 04 MG, Q4H
     Route: 064
  2. ZOFRAN [Suspect]
     Active Substance: ONDANSETRON HYDROCHLORIDE
     Indication: FOETAL EXPOSURE DURING PREGNANCY
     Dosage: MOTHER DOSE: 04 MG, Q8H
     Route: 064
  3. ONDANSETRON [Suspect]
     Active Substance: ONDANSETRON
     Indication: FOETAL EXPOSURE DURING PREGNANCY
     Dosage: MOTHER DOSE: 04 MG, Q8H
     Route: 064

REACTIONS (79)
  - Congenital scoliosis [Unknown]
  - Anal atresia [Unknown]
  - Left ventricular enlargement [Unknown]
  - Cholestasis [Unknown]
  - Intraventricular haemorrhage neonatal [Unknown]
  - Nephrocalcinosis [Unknown]
  - Inguinal hernia [Unknown]
  - Lip dry [Unknown]
  - Wheezing [Unknown]
  - Dysphagia [Unknown]
  - Heart disease congenital [Unknown]
  - Kidney malformation [Unknown]
  - Congenital bladder anomaly [Unknown]
  - Single functional kidney [Unknown]
  - Placental transfusion syndrome [Unknown]
  - Hypoglycaemia neonatal [Unknown]
  - Cholangitis [Unknown]
  - Coagulopathy [Unknown]
  - Developmental delay [Unknown]
  - Pharyngitis streptococcal [Unknown]
  - Cardiovascular disorder [Unknown]
  - Rib deformity [Unknown]
  - Atrial septal defect [Unknown]
  - Bronchopulmonary dysplasia [Unknown]
  - Neonatal respiratory distress syndrome [Unknown]
  - Urinary tract infection neonatal [Unknown]
  - Pain [Unknown]
  - Nasopharyngitis [Unknown]
  - Neonatal hypocalcaemia [Unknown]
  - Gastrointestinal malformation [Unknown]
  - Cryptorchism [Unknown]
  - Patent ductus arteriosus [Unknown]
  - Reproductive tract disorder [Unknown]
  - Hepatitis neonatal [Unknown]
  - Hyponatraemia [Unknown]
  - Nasal congestion [Unknown]
  - Cough [Unknown]
  - Anaemia neonatal [Unknown]
  - Gastrooesophageal reflux disease [Unknown]
  - Craniofacial deformity [Unknown]
  - Congenital central nervous system anomaly [Unknown]
  - Left atrial enlargement [Unknown]
  - Bradycardia neonatal [Unknown]
  - Biliary tract disorder [Unknown]
  - Low birth weight baby [Unknown]
  - Respiratory tract malformation [Unknown]
  - Limb malformation [Unknown]
  - Thrombocytopenia neonatal [Unknown]
  - Enterocolitis [Unknown]
  - Pneumonia [Unknown]
  - Neonatal respiratory failure [Unknown]
  - Retinopathy of prematurity [Unknown]
  - Hyperbilirubinaemia neonatal [Unknown]
  - Hepatic fibrosis [Unknown]
  - Hypokalaemia [Unknown]
  - Extrasystoles [Unknown]
  - Torticollis [Unknown]
  - Congenital anomaly [Unknown]
  - Sepsis neonatal [Unknown]
  - Neonatal hypotension [Unknown]
  - Foetal exposure during pregnancy [Unknown]
  - Supraventricular extrasystoles [Unknown]
  - Emotional distress [Unknown]
  - Dysplasia [Unknown]
  - Otitis media acute [Unknown]
  - Hyperglycaemia [Unknown]
  - Metabolic acidosis [Unknown]
  - Cardiomegaly [Unknown]
  - Limb reduction defect [Unknown]
  - VACTERL syndrome [Unknown]
  - Left-to-right cardiac shunt [Unknown]
  - Premature baby [Unknown]
  - Arrhythmia [Unknown]
  - Injury [Unknown]
  - Atelectasis [Unknown]
  - Rhinorrhoea [Unknown]
  - Abdominal distension [Unknown]
  - Pyrexia [Unknown]
  - Diarrhoea [Unknown]
